FAERS Safety Report 12397360 (Version 3)
Quarter: 2018Q1

REPORT INFORMATION
  Report Type: Spontaneous
  Country: US (occurrence: US)
  Receive Date: 20160524
  Receipt Date: 20180209
  Transmission Date: 20180508
  Serious: No
  Sender: FDA-Public Use
  Company Number: US-PFIZER INC-2016268714

PATIENT
  Age: 70 Year
  Sex: Female

DRUGS (1)
  1. XELJANZ [Suspect]
     Active Substance: TOFACITINIB CITRATE
     Dosage: 5 MG, 1X/DAY (Q.D, 30 DAY SUPPLY)
     Route: 048

REACTIONS (4)
  - Gastritis [Unknown]
  - Urethritis [Unknown]
  - Product use issue [Unknown]
  - Cystitis [Unknown]
